FAERS Safety Report 10050825 (Version 1)
Quarter: 2014Q2

REPORT INFORMATION
  Report Type: Spontaneous
  Country: US (occurrence: US)
  Receive Date: 20140401
  Receipt Date: 20140401
  Transmission Date: 20141212
  Serious: No
  Sender: FDA-Public Use
  Company Number: US-ASTRAZENECA-2014SE04236

PATIENT
  Age: 90 Year
  Sex: Female

DRUGS (1)
  1. NEXIUM [Suspect]
     Indication: ABDOMINAL PAIN UPPER
     Route: 048
     Dates: start: 20090101

REACTIONS (3)
  - Abdominal pain upper [Unknown]
  - Off label use [Unknown]
  - Drug dose omission [Unknown]
